FAERS Safety Report 4938533-1 (Version None)
Quarter: 2006Q1

REPORT INFORMATION
  Report Type: 
  Country: None (occurrence: None)
  Receive Date: 20060113
  Receipt Date: 20050106
  Transmission Date: 20060701
  Serious: Yes (Other)
  Sender: FDA-Public Use
  Company Number: HQWYE217917JUL04

PATIENT
  Age: 55 Year
  Sex: Female
  Weight: 72.64 kg

DRUGS (4)
  1. PREMPHASE 14/14 [Suspect]
     Dosage: ORAL
     Route: 048
     Dates: end: 19981101
  2. PREMARIN [Suspect]
     Dosage: ORAL
     Dates: start: 19950101
  3. PROVERA [Suspect]
     Dosage: ORAL
     Dates: start: 19950101, end: 19970101
  4. ENALAPRIL MALEATE [Concomitant]

REACTIONS (1)
  - BREAST CANCER [None]
